FAERS Safety Report 20780523 (Version 3)
Quarter: 2022Q2

REPORT INFORMATION
  Report Type: Spontaneous
  Country: US (occurrence: US)
  Receive Date: 20220504
  Receipt Date: 20220616
  Transmission Date: 20220721
  Serious: Yes (Other)
  Sender: FDA-Public Use
  Company Number: US-SA-SAC20220503000060

PATIENT
  Sex: Male

DRUGS (4)
  1. DUPIXENT [Suspect]
     Active Substance: DUPILUMAB
     Indication: Dermatitis atopic
     Dosage: 300 MG, QOW
     Route: 058
     Dates: start: 202108
  2. PREDNISONE [Concomitant]
     Active Substance: PREDNISONE
     Dosage: 50 MG, QD
  3. VITAMIN D NOS [Concomitant]
     Active Substance: VITAMIN D NOS
  4. CALCIUM [Concomitant]
     Active Substance: CALCIUM

REACTIONS (2)
  - IgA nephropathy [Unknown]
  - Renal disorder [Not Recovered/Not Resolved]
